FAERS Safety Report 9422793 (Version 2)
Quarter: 2013Q3

REPORT INFORMATION
  Report Type: Spontaneous
  Country: US (occurrence: None)
  Receive Date: 20130724
  Receipt Date: 20130801
  Transmission Date: 20140515
  Serious: Yes (Other)
  Sender: FDA-Public Use
  Company Number: 2013P1012453

PATIENT
  Age: 67 Year
  Sex: Male

DRUGS (4)
  1. INFUMORPH [Suspect]
     Indication: CANCER PAIN
     Route: 037
  2. INFUMORPH [Suspect]
     Indication: GASTROINTESTINAL DISORDER
     Route: 037
  3. MARCAINE [Suspect]
     Indication: CANCER PAIN
  4. MARCAINE [Suspect]
     Indication: GASTROINTESTINAL DISORDER

REACTIONS (6)
  - Pain [None]
  - No therapeutic response [None]
  - Medical device complication [None]
  - Device failure [None]
  - Incorrect dose administered by device [None]
  - Device kink [None]
